FAERS Safety Report 15992122 (Version 1)
Quarter: 2019Q1

REPORT INFORMATION
  Report Type: Spontaneous
  Country: BR (occurrence: BR)
  Receive Date: 20190221
  Receipt Date: 20190221
  Transmission Date: 20190418
  Serious: Yes (Hospitalization)
  Sender: FDA-Public Use
  Company Number: BR-AKRON, INC.-2063019

PATIENT
  Age: 74 Year
  Sex: Male

DRUGS (1)
  1. COSOPT [Suspect]
     Active Substance: DORZOLAMIDE HYDROCHLORIDE\TIMOLOL MALEATE
     Indication: GLAUCOMA
     Route: 047

REACTIONS (10)
  - Headache [Unknown]
  - Dizziness [Unknown]
  - Asthenia [Unknown]
  - Depression [Unknown]
  - Haematoma [Unknown]
  - Syncope [Unknown]
  - Face injury [Unknown]
  - Fatigue [Unknown]
  - Paraesthesia [Unknown]
  - Bradycardia [Unknown]
